FAERS Safety Report 20331782 (Version 1)
Quarter: 2022Q1

REPORT INFORMATION
  Report Type: Other
  Country: CN (occurrence: None)
  Receive Date: 20220113
  Receipt Date: 20220113
  Transmission Date: 20220423
  Serious: Yes (Other)
  Sender: FDA-Public Use
  Company Number: CN-ROCHE-2998347

PATIENT
  Age: 58 Year
  Sex: Male

DRUGS (12)
  1. MYCOPHENOLATE MOFETIL [Suspect]
     Active Substance: MYCOPHENOLATE MOFETIL
     Indication: Graft versus host disease
     Route: 065
  2. TACROLIMUS [Suspect]
     Active Substance: TACROLIMUS
     Indication: Graft versus host disease
     Route: 065
  3. CYTARABINE [Concomitant]
     Active Substance: CYTARABINE
  4. BUSULFAN [Concomitant]
     Active Substance: BUSULFAN
  5. CYCLOPHOSPHAMIDE [Concomitant]
     Active Substance: CYCLOPHOSPHAMIDE
     Dosage: DAY 1
  6. CYCLOSPORINE [Concomitant]
     Active Substance: CYCLOSPORINE
  7. DEXAMETHASONE [Concomitant]
     Active Substance: DEXAMETHASONE
     Dosage: 10 MG/DAY
  8. RUXOLITINIB [Concomitant]
     Active Substance: RUXOLITINIB
     Dosage: 5 MG/DAY
     Route: 065
  9. RUXOLITINIB [Concomitant]
     Active Substance: RUXOLITINIB
     Dosage: 10 MG/DAY
     Route: 065
  10. VINDESINE [Concomitant]
     Active Substance: VINDESINE
     Dosage: DAY 1
  11. ETOPOSIDE [Concomitant]
     Active Substance: ETOPOSIDE
     Dosage: 100 MG ON DAYS 1, 3, AND 5
  12. TUCIDINOSTAT [Concomitant]
     Active Substance: TUCIDINOSTAT
     Dosage: AT DAY +66

REACTIONS (1)
  - Lymphoproliferative disorder [Recovered/Resolved]
